FAERS Safety Report 7370749-X (Version None)
Quarter: 2011Q1

REPORT INFORMATION
  Report Type: 
  Country: None (occurrence: None)
  Receive Date: 20110323
  Receipt Date: 20110318
  Transmission Date: 20110831
  Serious: Yes (Life-Threatening, Other)
  Sender: FDA-Public Use
  Company Number: PL-BRISTOL-MYERS SQUIBB COMPANY-15628902

PATIENT
  Age: 53 Year
  Sex: Male
  Weight: 70 kg

DRUGS (5)
  1. IFOSFAMIDE [Suspect]
     Indication: CHRONIC MYELOID LEUKAEMIA
  2. ETOPOSIDE [Suspect]
  3. CARBOPLATIN [Suspect]
     Indication: CHRONIC MYELOID LEUKAEMIA
  4. FUNGIZONE [Suspect]
     Indication: CANDIDIASIS
     Route: 042
     Dates: start: 20110304, end: 20110317
  5. HEVIRAN [Concomitant]
     Route: 042

REACTIONS (3)
  - OPPORTUNISTIC INFECTION [None]
  - NEUTROPENIA [None]
  - HYPERSENSITIVITY [None]
